FAERS Safety Report 5129995-8 (Version None)
Quarter: 2006Q4

REPORT INFORMATION
  Report Type: 
  Country: None (occurrence: None)
  Receive Date: 20061013
  Receipt Date: 20061002
  Transmission Date: 20070319
  Serious: Yes (Other)
  Sender: FDA-Public Use
  Company Number: 2006119423

PATIENT
  Age: 68 Year
  Sex: Female

DRUGS (6)
  1. PREGABALIN ( PREGABALIN) [Suspect]
     Dosage: 75 MG, ORAL
     Route: 048
     Dates: start: 20060524, end: 20060712
  2. OXYCONTIN [Suspect]
     Indication: PAIN
     Dosage: 100 MG ORAL
     Route: 048
  3. AMITRIPTYLINE HCL [Concomitant]
  4. AUGMENTIN '125' [Concomitant]
  5. CLARITHROMYCIN [Concomitant]
  6. FLUOXETINE [Concomitant]

REACTIONS (4)
  - CONFUSIONAL STATE [None]
  - DEPRESSED LEVEL OF CONSCIOUSNESS [None]
  - DRUG INTERACTION [None]
  - SOMNOLENCE [None]
